FAERS Safety Report 8039103-1 (Version None)
Quarter: 2012Q1

REPORT INFORMATION
  Report Type: 
  Country: None (occurrence: None)
  Receive Date: 20120111
  Receipt Date: 20111212
  Transmission Date: 20120608
  Serious: No
  Sender: FDA-Public Use
  Company Number: US-AMGEN-USASP2011066151

PATIENT
  Age: 46 Year
  Sex: Female

DRUGS (2)
  1. ENBREL [Suspect]
     Indication: RHEUMATOID ARTHRITIS
     Dosage: 50 MG, QWK
     Dates: start: 20100420, end: 20111120
  2. METHOTREXATE [Concomitant]
     Dosage: UNK

REACTIONS (5)
  - RHEUMATOID ARTHRITIS [None]
  - PNEUMONIA [None]
  - ORAL CANDIDIASIS [None]
  - HEPATIC ENZYME INCREASED [None]
  - NASOPHARYNGITIS [None]
